FAERS Safety Report 15987072 (Version 2)
Quarter: 2020Q3

REPORT INFORMATION
  Report Type: Spontaneous
  Country: US (occurrence: US)
  Receive Date: 20190220
  Receipt Date: 20200813
  Transmission Date: 20201102
  Serious: Yes (Other)
  Sender: FDA-Public Use
  Company Number: PHEH2019US007675

PATIENT
  Age: 78 Year
  Sex: Male

DRUGS (2)
  1. TASIGNA [Suspect]
     Active Substance: NILOTINIB
     Indication: CHRONIC MYELOID LEUKAEMIA
     Dosage: 1 DF, BID
     Route: 048
     Dates: start: 201510, end: 201601
  2. TASIGNA [Suspect]
     Active Substance: NILOTINIB
     Dosage: 1 DF, BID
     Route: 048
     Dates: start: 201703, end: 201805

REACTIONS (17)
  - Peripheral vascular disorder [Unknown]
  - Dysphonia [Unknown]
  - Emotional distress [Unknown]
  - Deafness bilateral [Unknown]
  - Intervertebral disc degeneration [Unknown]
  - Pain [Unknown]
  - Chronic kidney disease [Unknown]
  - Tinnitus [Unknown]
  - Hyperuricaemia [Unknown]
  - Chronic obstructive pulmonary disease [Unknown]
  - Anaemia [Unknown]
  - Pneumonia [Unknown]
  - Myocardial infarction [Unknown]
  - Injury [Unknown]
  - Dyspnoea [Unknown]
  - Hyperglycaemia [Unknown]
  - Anxiety [Unknown]

NARRATIVE: CASE EVENT DATE: 201805
